FAERS Safety Report 5107238-9 (Version None)
Quarter: 2006Q3

REPORT INFORMATION
  Report Type: 
  Country: None (occurrence: None)
  Receive Date: 20060913
  Receipt Date: 20060831
  Transmission Date: 20061208
  Serious: Yes (Life-Threatening, Hospitalization)
  Sender: FDA-Public Use
  Company Number: T200600877

PATIENT
  Age: 49 Year
  Sex: Female

DRUGS (2)
  1. OPTIRAY 320 [Suspect]
     Indication: COMPUTERISED TOMOGRAM
     Dosage: SINGLE, INTRAVENOUS
     Route: 042
     Dates: start: 20060810, end: 20060810
  2. OPTIRAY 320 [Suspect]

REACTIONS (4)
  - AIR EMBOLISM [None]
  - CYANOSIS [None]
  - MEDICATION ERROR [None]
  - UNRESPONSIVE TO STIMULI [None]
